FAERS Safety Report 19408135 (Version 1)
Quarter: 2021Q2

REPORT INFORMATION
  Report Type: Spontaneous
  Country: FR (occurrence: FR)
  Receive Date: 20210611
  Receipt Date: 20210611
  Transmission Date: 20210717
  Serious: Yes (Other)
  Sender: FDA-Public Use
  Company Number: FR-PFIZER INC-2021638174

PATIENT
  Age: 67 Year
  Sex: Male
  Weight: 80 kg

DRUGS (9)
  1. PROPOFOL. [Suspect]
     Active Substance: PROPOFOL
     Indication: SEDATION
     Dosage: 200 MG PER HOUR, DELAY OF FIRST ADMINISTRATION DAY 16
     Route: 042
     Dates: start: 20210414, end: 20210511
  2. TAZOCILLINE [Suspect]
     Active Substance: PIPERACILLIN SODIUM\TAZOBACTAM SODIUM
     Indication: INFECTION
     Dosage: 4 G, 1X/DAY
     Route: 042
     Dates: start: 20210428, end: 20210429
  3. URAPIDIL [Suspect]
     Active Substance: URAPIDIL
     Indication: HYPERTENSION
     Dosage: 232 MG, 13 MG PER HOUR, DELAY OF FIRST ADMINISTRATION DAY 4
     Route: 042
     Dates: start: 20210426, end: 20210430
  4. AMLODIPINE [Suspect]
     Active Substance: AMLODIPINE BESYLATE
     Indication: HYPERTENSION
     Dosage: 10 MG, 1X/DAY
     Route: 048
     Dates: start: 20210510, end: 20210511
  5. MIDAZOLAM. [Suspect]
     Active Substance: MIDAZOLAM
     Indication: SEDATION
     Dosage: 25 MG PER HOUR, DELAY OF FIRST ADMINISTRATION DAY 10
     Route: 042
     Dates: start: 20210419, end: 20210509
  6. LOVENOX [Suspect]
     Active Substance: ENOXAPARIN SODIUM
     Indication: THROMBOSIS PROPHYLAXIS
     Dosage: 0.8 ML, 2X/DAY
     Route: 058
     Dates: start: 20210414
  7. FUROSEMIDE. [Suspect]
     Active Substance: FUROSEMIDE
     Indication: HYPERTENSION
     Dosage: 40 MG, 1X/DAY
     Route: 042
     Dates: start: 20210426, end: 20210430
  8. NICARDIPINE HYDROCHLORIDE. [Suspect]
     Active Substance: NICARDIPINE HYDROCHLORIDE
     Indication: HYPERTENSION
     Dosage: 50 MG, 1X/DAY (2 MG PER HOUR, DELAY OF FIRST ADMINISTRATION DAY 11)
     Route: 042
     Dates: start: 20210418, end: 20210418
  9. SUFENTANIL [Suspect]
     Active Substance: SUFENTANIL
     Indication: SEDATION
     Dosage: 10 UG PER HOUR, DELAY OF ADMINISTRATION DAY 16
     Route: 042
     Dates: start: 20210414, end: 20210524

REACTIONS (1)
  - Drug reaction with eosinophilia and systemic symptoms [Recovering/Resolving]

NARRATIVE: CASE EVENT DATE: 20210429
